FAERS Safety Report 16627977 (Version 2)
Quarter: 2019Q3

REPORT INFORMATION
  Report Type: Spontaneous
  Country: JP (occurrence: JP)
  Receive Date: 20190724
  Receipt Date: 20190802
  Transmission Date: 20191004
  Serious: Yes (Life-Threatening, Hospitalization, Other)
  Sender: FDA-Public Use
  Company Number: JP-ALLERGAN-1929651US

PATIENT
  Sex: Female

DRUGS (4)
  1. MIRTAZAPINE. [Concomitant]
     Active Substance: MIRTAZAPINE
     Dosage: 6 MG, QD
     Route: 048
  2. ESCITALOPRAM OXALATE - BP [Suspect]
     Active Substance: ESCITALOPRAM OXALATE
     Indication: SOCIAL ANXIETY DISORDER
     Dosage: 20 MG, QD
     Route: 048
     Dates: start: 2018
  3. ESCITALOPRAM OXALATE - BP [Suspect]
     Active Substance: ESCITALOPRAM OXALATE
     Indication: DEPRESSION
     Dosage: OVERDOSE: 100 TABLETS
     Route: 048
  4. MIRTAZAPINE. [Concomitant]
     Active Substance: MIRTAZAPINE
     Indication: PRODUCT USED FOR UNKNOWN INDICATION
     Dosage: 3 MG, QD
     Route: 048

REACTIONS (4)
  - Suicide attempt [Recovering/Resolving]
  - Seizure [Recovering/Resolving]
  - Intentional overdose [Unknown]
  - Off label use [Unknown]

NARRATIVE: CASE EVENT DATE: 20190402
